FAERS Safety Report 16116772 (Version 1)
Quarter: 2019Q1

REPORT INFORMATION
  Report Type: Other
  Country: FR (occurrence: FR)
  Receive Date: 20190326
  Receipt Date: 20190326
  Transmission Date: 20190418
  Serious: Yes (Life-Threatening)
  Sender: FDA-Public Use
  Company Number: FR-EMCURE PHARMACEUTICALS LTD-2019-EPL-0141

PATIENT
  Age: 60 Year
  Sex: Male

DRUGS (16)
  1. CELIPROLOL HYDROCHLORIDE [Suspect]
     Active Substance: CELIPROLOL HYDROCHLORIDE
     Indication: HYPERTENSION
     Dosage: 200 MILLIGRAM, 1 DAY
     Route: 048
     Dates: end: 20181224
  2. ETOPOSIDE. [Suspect]
     Active Substance: ETOPOSIDE
     Indication: MANTLE CELL LYMPHOMA
     Dosage: 400 MILLIGRAM/SQ. METER, QD
     Route: 042
     Dates: start: 20181213, end: 20181218
  3. CEFTRIAXONE. [Suspect]
     Active Substance: CEFTRIAXONE
     Indication: SEPSIS
     Dosage: 1 GRAM, QD
     Route: 042
     Dates: start: 20181215, end: 20181222
  4. CYTARABINE. [Suspect]
     Active Substance: CYTARABINE
     Indication: MANTLE CELL LYMPHOMA
     Dosage: 200 MILLIGRAM/SQ. METER, QD
     Route: 042
     Dates: start: 20181213, end: 20181218
  5. GABAPENTINE [Suspect]
     Active Substance: GABAPENTIN
     Indication: NEUROPATHY PERIPHERAL
     Dosage: 3600 MILLIGRAM, QD
     Route: 048
     Dates: end: 20181224
  6. INSULINE                           /01223401/ [Concomitant]
     Active Substance: INSULIN NOS
  7. DEXAMETHASONE SODIUM PHOSPHATE, NEOMYCIN SULFATE [Suspect]
     Active Substance: DEXAMETHASONE SODIUM PHOSPHATE\NEOMYCIN SULFATE
     Indication: PRODUCT USED FOR UNKNOWN INDICATION
     Dosage: 3 DROP, QD
     Route: 047
     Dates: start: 20181214, end: 20181223
  8. ZOPICLONE [Suspect]
     Active Substance: ZOPICLONE
     Indication: INSOMNIA
     Dosage: 3.75 MILLIGRAM, QD
     Route: 048
     Dates: end: 20181224
  9. MELPHALAN. [Suspect]
     Active Substance: MELPHALAN
     Indication: MANTLE CELL LYMPHOMA
     Dosage: 140 MILLIGRAM/SQ. METER, QD
     Route: 042
     Dates: start: 20181213, end: 20181218
  10. EMEND [Suspect]
     Active Substance: APREPITANT
     Indication: PROPHYLAXIS OF NAUSEA AND VOMITING
     Dosage: 80 MILLIGRAM, QD
     Route: 048
     Dates: start: 20181213, end: 20181218
  11. VALACICLOVIR [Suspect]
     Active Substance: VALACYCLOVIR HYDROCHLORIDE
     Indication: PROPHYLAXIS
     Dosage: 500 MILLIGRAM, QD
     Route: 048
     Dates: start: 20181212, end: 20181225
  12. ONDANSETRON [Concomitant]
     Active Substance: ONDANSETRON
  13. TOPIRAMATE. [Suspect]
     Active Substance: TOPIRAMATE
     Indication: ESSENTIAL TREMOR
     Dosage: 50 MILLIGRAM, QD
     Route: 048
     Dates: end: 20181225
  14. TINZAPARIN SODIUM [Suspect]
     Active Substance: TINZAPARIN SODIUM
     Indication: THROMBOSIS PROPHYLAXIS
     Dosage: 1 DOSAGE FORM, QD
     Route: 058
     Dates: start: 20181213, end: 20181226
  15. BICNU [Suspect]
     Active Substance: CARMUSTINE
     Indication: MANTLE CELL LYMPHOMA
     Dosage: 300 MILLIGRAM/SQ. METER, QD
     Route: 042
     Dates: start: 20181213, end: 20181218
  16. EZETIMIBE. [Suspect]
     Active Substance: EZETIMIBE
     Indication: DYSLIPIDAEMIA
     Dosage: 10 MILLIGRAM, QD
     Route: 048
     Dates: end: 20181225

REACTIONS (3)
  - Erythema [Recovered/Resolved]
  - Pruritus [Recovered/Resolved]
  - Aplasia [Recovering/Resolving]

NARRATIVE: CASE EVENT DATE: 20181218
